FAERS Safety Report 6651245-1 (Version None)
Quarter: 2010Q1

REPORT INFORMATION
  Report Type: 
  Country: None (occurrence: None)
  Receive Date: 20100325
  Receipt Date: 20100112
  Transmission Date: 20100710
  Serious: No
  Sender: FDA-Public Use
  Company Number: US-AMGEN-KDL385449

PATIENT
  Sex: Female

DRUGS (5)
  1. NEULASTA [Suspect]
     Indication: CHEMOTHERAPY
     Dates: start: 20091108
  2. COUMADIN [Concomitant]
  3. DOXORUBICIN HCL [Concomitant]
  4. TOPROL-XL [Concomitant]
     Dates: start: 20020101
  5. UNSPECIFIED MEDICATION [Concomitant]

REACTIONS (3)
  - DIZZINESS [None]
  - SYNCOPE [None]
  - WHITE BLOOD CELL COUNT DECREASED [None]
